FAERS Safety Report 9683407 (Version 1)
Quarter: 2013Q4

REPORT INFORMATION
  Report Type: Spontaneous
  Country: US (occurrence: None)
  Receive Date: 20131111
  Receipt Date: 20131111
  Transmission Date: 20140711
  Serious: Yes (Other)
  Sender: FDA-Public Use
  Company Number: None

PATIENT
  Age: 66 Year
  Sex: Male
  Weight: 92 kg

DRUGS (7)
  1. ENZALUTAMIDE [Suspect]
     Indication: PROSTATE CANCER METASTATIC
     Dosage: 4 CAPS  QD  ORAL
     Route: 048
  2. OMEPRAZOLE [Concomitant]
  3. METFORMIN [Concomitant]
  4. IBUPROFEN/DIPHENHYDRAMINE (ADVIL PM) [Concomitant]
  5. IBUPROFEN [Concomitant]
  6. CALCIUM + VITAMIN D [Concomitant]
  7. CENTRUM MULTIPLE VITAMINS WITH MINERALS [Concomitant]

REACTIONS (3)
  - Fatigue [None]
  - Confusional state [None]
  - Disturbance in attention [None]
